FAERS Safety Report 8205561-2 (Version None)
Quarter: 2012Q1

REPORT INFORMATION
  Report Type: 
  Country: None (occurrence: None)
  Receive Date: 20120313
  Receipt Date: 20120229
  Transmission Date: 20120608
  Serious: Yes (Death, Hospitalization)
  Sender: FDA-Public Use
  Company Number: RU-ACTELION-A-CH2012-61859

PATIENT
  Age: 14 Year
  Sex: Female

DRUGS (4)
  1. TRACLEER [Suspect]
     Indication: PULMONARY ARTERIAL HYPERTENSION
     Dosage: 62.5 MG, BID
     Route: 048
     Dates: start: 20111215
  2. ASPIRIN [Concomitant]
  3. SILDENAFIL [Concomitant]
  4. CAPOTEN [Concomitant]

REACTIONS (1)
  - CARDIAC FAILURE CHRONIC [None]
